FAERS Safety Report 22059978 (Version 4)
Quarter: 2023Q2

REPORT INFORMATION
  Report Type: Report from Study
  Country: CN (occurrence: None)
  Receive Date: 20230303
  Receipt Date: 20230530
  Transmission Date: 20230721
  Serious: Yes (Hospitalization)
  Sender: FDA-Public Use
  Company Number: CN-ROCHE-3295038

PATIENT
  Age: 83 Year
  Sex: Female
  Weight: 55 kg

DRUGS (25)
  1. PLACEBO [Suspect]
     Active Substance: UNSPECIFIED INGREDIENT
     Indication: Lung adenocarcinoma
     Dosage: START DATE OF MOST RECENT DOSE OF STUDY DRUG PRIOR TO AE/SAE WAS 02/FEB/2023.
     Route: 042
     Dates: start: 20230202
  2. ATEZOLIZUMAB [Suspect]
     Active Substance: ATEZOLIZUMAB
     Indication: Lung adenocarcinoma
     Dosage: DOSE LAST STUDY DRUG ADMIN PRIOR AE/SAE WAS 1200 MG, START DATE OF MOST RECENT DOSE OF STUDY DRUG PR
     Route: 041
     Dates: start: 20230202
  3. FUROSEMIDE [Concomitant]
     Active Substance: FUROSEMIDE
     Indication: Polyuria
     Route: 042
     Dates: start: 20230129, end: 20230204
  4. FUROSEMIDE [Concomitant]
     Active Substance: FUROSEMIDE
     Route: 042
     Dates: start: 20230403
  5. POTASSIUM CHLORIDE [Concomitant]
     Active Substance: POTASSIUM CHLORIDE
     Route: 048
     Dates: start: 20230201, end: 20230208
  6. HYDROCHLOROTHIAZIDE [Concomitant]
     Active Substance: HYDROCHLOROTHIAZIDE
     Indication: Polyuria
     Route: 048
     Dates: start: 20230203, end: 20230208
  7. SPIRONOLACTONE [Concomitant]
     Active Substance: SPIRONOLACTONE
     Indication: Polyuria
     Dosage: 2 TABLET
     Route: 048
     Dates: start: 20230203, end: 20230208
  8. VITAMIN B6 [Concomitant]
     Active Substance: PYRIDOXINE HYDROCHLORIDE
     Indication: Nutritional supplementation
     Route: 042
     Dates: start: 20230223, end: 20230303
  9. IBUPROFEN [Concomitant]
     Active Substance: IBUPROFEN
     Indication: Pyrexia
     Route: 048
     Dates: start: 20230306, end: 20230310
  10. ENOXAPARIN SODIUM [Concomitant]
     Active Substance: ENOXAPARIN SODIUM
     Route: 058
     Dates: start: 20230403
  11. PIPERACILLIN AND TAZOBACTAM [Concomitant]
     Active Substance: PIPERACILLIN SODIUM\TAZOBACTAM SODIUM
     Route: 042
     Dates: start: 20230403
  12. MYCOPHENOLATE MOFETIL [Concomitant]
     Active Substance: MYCOPHENOLATE MOFETIL
     Route: 048
     Dates: start: 20230403
  13. PENICILLIN G SODIUM [Concomitant]
     Active Substance: PENICILLIN G SODIUM
     Route: 062
     Dates: start: 20230403
  14. BUDESONIDE [Concomitant]
     Active Substance: BUDESONIDE
     Route: 055
     Dates: start: 20230403, end: 20230404
  15. ALBUTEROL SULFATE [Concomitant]
     Active Substance: ALBUTEROL SULFATE
     Route: 055
     Dates: start: 20230403, end: 20230404
  16. DYPHYLLINE [Concomitant]
     Active Substance: DYPHYLLINE
     Route: 055
     Dates: start: 20230403
  17. AMBROXOL HYDROCHLORIDE [Concomitant]
     Active Substance: AMBROXOL HYDROCHLORIDE
     Route: 055
     Dates: start: 20230403
  18. ACETYLCYSTEINE [Concomitant]
     Active Substance: ACETYLCYSTEINE
     Route: 048
     Dates: start: 20230403
  19. OMEPRAZOLE SODIUM [Concomitant]
     Active Substance: OMEPRAZOLE SODIUM
     Route: 042
     Dates: start: 20230403
  20. LACTULOSE [Concomitant]
     Active Substance: LACTULOSE
     Route: 048
     Dates: start: 20230403
  21. ORYZ-ASPERGILLUS ENZYME AND PANCREATIN [Concomitant]
     Dosage: 1 TABLET
     Route: 048
     Dates: start: 20230403
  22. TOLVAPTAN [Concomitant]
     Active Substance: TOLVAPTAN
     Indication: Hyponatraemia
     Route: 048
     Dates: start: 20230403
  23. VITAMIN C [Concomitant]
     Active Substance: ASCORBIC ACID
     Route: 042
     Dates: start: 20230403
  24. ALBUMIN HUMAN [Concomitant]
     Active Substance: ALBUMIN HUMAN
     Indication: Hypoalbuminaemia
     Route: 042
     Dates: start: 20230406, end: 20230410
  25. SILYBIN MEGLUMINE [Concomitant]
     Dosage: 3 TABLET
     Route: 048
     Dates: start: 20230418

REACTIONS (1)
  - Immune-mediated hepatitis [Not Recovered/Not Resolved]

NARRATIVE: CASE EVENT DATE: 20230223
